FAERS Safety Report 25360467 (Version 1)
Quarter: 2025Q2

REPORT INFORMATION
  Report Type: Spontaneous
  Country: IR (occurrence: IR)
  Receive Date: 20250527
  Receipt Date: 20250527
  Transmission Date: 20250716
  Serious: Yes (Hospitalization)
  Sender: Norvium Bioscience
  Company Number: IR-Norvium Bioscience LLC-080185

PATIENT
  Age: 23 Year
  Sex: Female

DRUGS (1)
  1. CITALOPRAM [Suspect]
     Active Substance: CITALOPRAM
     Indication: Product used for unknown indication

REACTIONS (3)
  - Toxicity to various agents [Unknown]
  - Overdose [Unknown]
  - Atrioventricular block first degree [Recovered/Resolved]
